FAERS Safety Report 9115620 (Version 1)
Quarter: 2013Q1

REPORT INFORMATION
  Report Type: Spontaneous
  Country: US (occurrence: None)
  Receive Date: 20130221
  Receipt Date: 20130221
  Transmission Date: 20140127
  Serious: No
  Sender: FDA-Public Use
  Company Number: None

PATIENT
  Sex: Female
  Weight: 117.03 kg

DRUGS (2)
  1. IRBESARTAN HCTZ 300/12.5MG [Suspect]
     Indication: HYPERTENSION
     Dosage: 1 TAB DAILY ORAL + ONE ~ AUGUST  2012
     Route: 048
     Dates: end: 201107
  2. IRBESARTAN HCTZ 300/12.5MG [Suspect]
     Indication: CARDIAC VENTRICULAR DISORDER
     Dosage: 1 TAB DAILY ORAL + ONE ~ AUGUST  2012
     Route: 048
     Dates: end: 201107

REACTIONS (2)
  - Headache [None]
  - Blood pressure inadequately controlled [None]
